FAERS Safety Report 4803922-2 (Version None)
Quarter: 2005Q3

REPORT INFORMATION
  Report Type: 
  Country: None (occurrence: None)
  Receive Date: 20050920
  Receipt Date: 20050811
  Transmission Date: 20060218
  Serious: No
  Sender: FDA-Public Use
  Company Number: US-YAMANOUCHI-YPA20050418

PATIENT
  Age: 83 Year
  Sex: Female

DRUGS (7)
  1. VESICARE [Suspect]
     Indication: HYPERTONIC BLADDER
     Dosage: 5 MG QD PO
     Route: 048
     Dates: start: 20050802
  2. PROTONIX [Concomitant]
  3. DIOVAN [Concomitant]
  4. PRAVACHOL [Concomitant]
  5. FOSAMAX [Concomitant]
  6. ASPIRIN [Concomitant]
  7. TRIAMTERENE [Concomitant]

REACTIONS (3)
  - FATIGUE [None]
  - PRURITUS [None]
  - THIRST [None]
